FAERS Safety Report 17279271 (Version 3)
Quarter: 2020Q1

REPORT INFORMATION
  Report Type: Spontaneous
  Country: NZ (occurrence: NZ)
  Receive Date: 20200116
  Receipt Date: 20200303
  Transmission Date: 20200409
  Serious: Yes (Other)
  Sender: FDA-Public Use
  Company Number: NZ-BAYER-2020-007757

PATIENT
  Age: 29 Year
  Sex: Female
  Weight: 50 kg

DRUGS (2)
  1. MIRENA [Suspect]
     Active Substance: LEVONORGESTREL
     Indication: CONTRACEPTION
     Dosage: 20 ?G PER DAY CONTINUOUSLY
     Route: 015
     Dates: start: 20160309
  2. MIRENA [Suspect]
     Active Substance: LEVONORGESTREL
     Indication: MENORRHAGIA

REACTIONS (12)
  - Pelvic inflammatory disease [None]
  - Dizziness [None]
  - Alopecia [None]
  - Dyspareunia [None]
  - Ear disorder [None]
  - Headache [None]
  - Coital bleeding [None]
  - Anxiety [None]
  - Back pain [None]
  - Abdominal pain lower [None]
  - Vertigo [None]
  - Libido decreased [None]

NARRATIVE: CASE EVENT DATE: 201804
